FAERS Safety Report 9676092 (Version 1)
Quarter: 2013Q4

REPORT INFORMATION
  Report Type: Spontaneous
  Country: US (occurrence: US)
  Receive Date: 20131107
  Receipt Date: 20131107
  Transmission Date: 20140711
  Serious: No
  Sender: FDA-Public Use
  Company Number: US-BAXTER-2013BAX043545

PATIENT
  Age: 73 Year
  Sex: Male
  Weight: 129.55 kg

DRUGS (4)
  1. GAMMAGARD LIQUID [Suspect]
     Indication: CHRONIC LYMPHOCYTIC LEUKAEMIA
     Route: 042
     Dates: start: 2011
  2. GAMMAGARD LIQUID [Suspect]
     Indication: IMMUNODEFICIENCY
  3. GAMMAGARD LIQUID [Suspect]
     Indication: NON-HODGKIN^S LYMPHOMA
  4. CELEBREX [Concomitant]
     Indication: PRODUCT USED FOR UNKNOWN INDICATION
     Route: 048

REACTIONS (1)
  - Contusion [Recovering/Resolving]
